FAERS Safety Report 18418643 (Version 1)
Quarter: 2020Q4

REPORT INFORMATION
  Report Type: Spontaneous
  Country: AU (occurrence: AU)
  Receive Date: 20201023
  Receipt Date: 20201023
  Transmission Date: 20210114
  Serious: Yes (Other)
  Sender: FDA-Public Use
  Company Number: AU-AMERICAN REGENT INC-2020002180

PATIENT
  Age: 32 Year
  Sex: Female

DRUGS (1)
  1. FERINJECT [Suspect]
     Active Substance: FERRIC CARBOXYMALTOSE
     Indication: BLOOD IRON DECREASED
     Dosage: 1000 MG (20 ML)
     Dates: start: 20200807, end: 20200807

REACTIONS (5)
  - Placenta praevia [Unknown]
  - Infusion site bruising [Not Recovered/Not Resolved]
  - Maternal exposure during pregnancy [Unknown]
  - Infusion site discolouration [Not Recovered/Not Resolved]
  - Infusion site extravasation [Unknown]

NARRATIVE: CASE EVENT DATE: 2020
